FAERS Safety Report 23448050 (Version 2)
Quarter: 2024Q1

REPORT INFORMATION
  Report Type: Spontaneous
  Country: FR (occurrence: FR)
  Receive Date: 20240126
  Receipt Date: 20240201
  Transmission Date: 20240410
  Serious: Yes (Other)
  Sender: FDA-Public Use
  Company Number: None

PATIENT
  Age: 31 Year
  Sex: Female

DRUGS (2)
  1. FLUCONAZOLE [Suspect]
     Active Substance: FLUCONAZOLE
     Indication: Fungal infection
     Dosage: 150 MG, WEEKLY
     Route: 048
     Dates: start: 202312, end: 202401
  2. DROSPIRENONE [Suspect]
     Active Substance: DROSPIRENONE
     Indication: Fungal infection
     Dosage: 1 DF, 1X/DAY
     Route: 048
     Dates: start: 202312, end: 202401

REACTIONS (1)
  - Cutaneous vasculitis [Recovered/Resolved]

NARRATIVE: CASE EVENT DATE: 20240106
